FAERS Safety Report 5871376-3 (Version None)
Quarter: 2008Q3

REPORT INFORMATION
  Report Type: 
  Country: None (occurrence: None)
  Receive Date: 20080905
  Receipt Date: 20080903
  Transmission Date: 20090109
  Serious: Yes (Death, Hospitalization)
  Sender: FDA-Public Use
  Company Number: US-BOEHRINGER INGELHEIM GMBH, GERMANY-2008-BP-13692BP

PATIENT

DRUGS (2)
  1. AGGRENOX [Suspect]
  2. PLAVIX [Concomitant]

REACTIONS (1)
  - HAEMORRHAGE INTRACRANIAL [None]
